FAERS Safety Report 13051026 (Version 1)
Quarter: 2016Q4

REPORT INFORMATION
  Report Type: Spontaneous
  Country: US (occurrence: US)
  Receive Date: 20161221
  Receipt Date: 20161221
  Transmission Date: 20170207
  Serious: No
  Sender: FDA-Public Use
  Company Number: US-PFIZER INC-2016591592

PATIENT

DRUGS (5)
  1. DIMETAPP CHILDRENS IBUPROFEN PAIN AND FEVER RELIEF [Suspect]
     Active Substance: IBUPROFEN
     Indication: PYREXIA
  2. DIMETAPP CHILDRENS IBUPROFEN PAIN AND FEVER RELIEF [Suspect]
     Active Substance: IBUPROFEN
     Indication: NASOPHARYNGITIS
  3. DIMETAPP CHILDRENS IBUPROFEN PAIN AND FEVER RELIEF [Suspect]
     Active Substance: IBUPROFEN
     Indication: INSOMNIA
  4. DIMETAPP CHILDRENS IBUPROFEN PAIN AND FEVER RELIEF [Suspect]
     Active Substance: IBUPROFEN
     Indication: PAIN
  5. DIMETAPP CHILDRENS IBUPROFEN PAIN AND FEVER RELIEF [Suspect]
     Active Substance: IBUPROFEN
     Indication: COUGH
     Dosage: UNK

REACTIONS (2)
  - Drug ineffective for unapproved indication [Unknown]
  - Drug effect decreased [Unknown]
